FAERS Safety Report 8359282-6 (Version None)
Quarter: 2012Q1

REPORT INFORMATION
  Report Type: 
  Country: None (occurrence: None)
  Receive Date: 20120315
  Receipt Date: 20110503
  Transmission Date: 20120608
  Serious: Yes (Other)
  Sender: FDA-Public Use
  Company Number: PHHY2011US13152

PATIENT
  Age: 38 Year
  Sex: Female
  Weight: 98 kg

DRUGS (7)
  1. XANAX [Concomitant]
  2. GILENYA [Suspect]
     Indication: MULTIPLE SCLEROSIS
     Dosage: 0.5 MG, QD, ORAL
     Route: 048
     Dates: start: 20110125
  3. GABAPENTIN [Concomitant]
  4. TRAZODONE HCL [Concomitant]
  5. CELEXA [Concomitant]
  6. ACETAMINOPHEN [Concomitant]
  7. VESICARE [Concomitant]

REACTIONS (4)
  - ORAL HERPES [None]
  - LIP DISORDER [None]
  - PYREXIA [None]
  - LIP PAIN [None]
